FAERS Safety Report 18196777 (Version 1)
Quarter: 2020Q3

REPORT INFORMATION
  Report Type: Spontaneous
  Country: BR (occurrence: BR)
  Receive Date: 20200826
  Receipt Date: 20200826
  Transmission Date: 20201103
  Serious: Yes (Death, Other)
  Sender: FDA-Public Use
  Company Number: BR-LUPIN PHARMACEUTICALS INC.-2020-05094

PATIENT
  Age: 60 Year
  Sex: Female

DRUGS (42)
  1. INSULIN [Concomitant]
     Active Substance: INSULIN NOS
     Indication: DIABETES MELLITUS
     Dosage: UNK
     Route: 065
     Dates: start: 20200402
  2. NOREPINEPHRINE. [Concomitant]
     Active Substance: NOREPINEPHRINE
     Dosage: 15 ML/H AFTER CP ARREST
     Route: 065
     Dates: start: 20200411
  3. CALCIUM GLUCONATE. [Concomitant]
     Active Substance: CALCIUM GLUCONATE
     Indication: PRODUCT USED FOR UNKNOWN INDICATION
     Dosage: UNK
     Route: 065
     Dates: start: 20200407
  4. SODIUM BICARBONATE. [Concomitant]
     Active Substance: SODIUM BICARBONATE
     Indication: PRODUCT USED FOR UNKNOWN INDICATION
     Dosage: 20 MILLILITER
     Route: 065
     Dates: start: 20200411
  5. MEROPENEM. [Concomitant]
     Active Substance: MEROPENEM
     Indication: PRODUCT USED FOR UNKNOWN INDICATION
     Dosage: UNK
     Route: 065
     Dates: start: 20200408
  6. DEXMEDETOMIDINE. [Concomitant]
     Active Substance: DEXMEDETOMIDINE
     Indication: PRODUCT USED FOR UNKNOWN INDICATION
     Dosage: UNK
     Route: 065
     Dates: start: 20200401
  7. EPINEPHRINE. [Concomitant]
     Active Substance: EPINEPHRINE
     Indication: CARDIAC ARREST
  8. DOBUTAMINE [Concomitant]
     Active Substance: DOBUTAMINE HYDROCHLORIDE
     Indication: PRODUCT USED FOR UNKNOWN INDICATION
     Dosage: 6 MICROGRAM/KILOGRAM
     Route: 065
     Dates: start: 20200402
  9. TOCILIZUMAB. [Concomitant]
     Active Substance: TOCILIZUMAB
     Indication: PRODUCT USED FOR UNKNOWN INDICATION
     Dosage: 400 MILLIGRAM
     Route: 065
     Dates: start: 20200407
  10. INSULIN GLULISINE [Concomitant]
     Active Substance: INSULIN GLULISINE
     Indication: DIABETES MELLITUS
     Dosage: UNK
     Route: 065
  11. LIDOCAINE. [Concomitant]
     Active Substance: LIDOCAINE
     Indication: SEDATIVE THERAPY
     Dosage: UNK
     Route: 065
     Dates: start: 20200401
  12. ROCURONIUM [Concomitant]
     Active Substance: ROCURONIUM BROMIDE
     Indication: SEDATIVE THERAPY
     Dosage: UNK
     Route: 065
     Dates: start: 20200401
  13. AZITHROMYCIN ANHYDROUS. [Suspect]
     Active Substance: AZITHROMYCIN ANHYDROUS
     Indication: COVID-19
     Dosage: UNK
     Route: 065
     Dates: start: 20200331
  14. ATROPINE. [Concomitant]
     Active Substance: ATROPINE
     Indication: CARDIAC ARREST
  15. NOREPINEPHRINE. [Concomitant]
     Active Substance: NOREPINEPHRINE
     Indication: CARDIO-RESPIRATORY ARREST
     Dosage: INITIAL INDICATION NOT STATED; WAS INCREASED TO 12 ML/H ON 11 APRIL 2020
     Route: 065
     Dates: start: 20200401
  16. NOREPINEPHRINE. [Concomitant]
     Active Substance: NOREPINEPHRINE
     Dosage: INCREASING NOREPINEPHRINE UP TO 40 ML/H
     Route: 065
     Dates: start: 20200411
  17. FENTANYL. [Concomitant]
     Active Substance: FENTANYL
     Indication: SEDATIVE THERAPY
     Dosage: UNK
     Route: 065
     Dates: start: 20200401, end: 20200411
  18. GABAPENTIN. [Concomitant]
     Active Substance: GABAPENTIN
     Indication: PRODUCT USED FOR UNKNOWN INDICATION
     Dosage: UNK
     Route: 065
  19. MICAFUNGIN. [Concomitant]
     Active Substance: MICAFUNGIN SODIUM
     Indication: PRODUCT USED FOR UNKNOWN INDICATION
     Dosage: UNK
     Route: 065
     Dates: start: 20200407
  20. AMIODARONE [Concomitant]
     Active Substance: AMIODARONE
     Indication: VENTRICULAR TACHYCARDIA
  21. METFORMIN [Concomitant]
     Active Substance: METFORMIN HYDROCHLORIDE
     Indication: DIABETES MELLITUS
     Dosage: 1 DOSAGE FORM, QD
     Route: 065
  22. FUROSEMIDE. [Concomitant]
     Active Substance: FUROSEMIDE
     Indication: PRODUCT USED FOR UNKNOWN INDICATION
     Dosage: UNK
     Route: 065
     Dates: start: 20200403
  23. AMOXICILLIN/CLAVULANIC ACID [Concomitant]
     Active Substance: AMOXICILLIN\CLAVULANIC ACID
     Indication: PRODUCT USED FOR UNKNOWN INDICATION
     Dosage: UNK
     Route: 065
     Dates: start: 20200401
  24. SODIUM BICARBONATE. [Concomitant]
     Active Substance: SODIUM BICARBONATE
     Dosage: 250 MILLILITER
     Route: 065
     Dates: start: 20200412
  25. IMMUNOGLOBULIN HUMAN [Concomitant]
     Active Substance: HUMAN IMMUNOGLOBULIN G
     Indication: HAEMOPHAGOCYTIC LYMPHOHISTIOCYTOSIS
     Dosage: UNK
     Route: 065
     Dates: start: 20200409
  26. EPINEPHRINE. [Concomitant]
     Active Substance: EPINEPHRINE
     Indication: CARDIO-RESPIRATORY ARREST
     Dosage: 1 MILLIGRAM, 2 VIALS OF EPINEPHRINE 1 MG; 3 VIALS OF EPINEPHRINE AT PERCUTANEOUS PACEMAKER INSERTION
     Route: 065
     Dates: start: 20200411
  27. HEPARIN [Concomitant]
     Active Substance: HEPARIN SODIUM
     Indication: PRODUCT USED FOR UNKNOWN INDICATION
     Dosage: UNK
     Route: 065
     Dates: start: 20200407, end: 20200411
  28. TEICOPLANIN [Concomitant]
     Active Substance: TEICOPLANIN
     Indication: PRODUCT USED FOR UNKNOWN INDICATION
     Dosage: UNK
     Route: 065
     Dates: start: 20200403
  29. LOSARTAN. [Concomitant]
     Active Substance: LOSARTAN
     Indication: HYPERTENSION
     Dosage: UNK
     Route: 065
  30. CISATRACURIUM BESILATE [Concomitant]
     Active Substance: CISATRACURIUM BESYLATE
     Indication: PRODUCT USED FOR UNKNOWN INDICATION
     Dosage: UNK
     Route: 065
     Dates: start: 20200403
  31. NOREPINEPHRINE. [Concomitant]
     Active Substance: NOREPINEPHRINE
     Indication: CARDIAC ARREST
     Dosage: AT 100 ML/H AT THE MOMENT OF THE CP ARREST
     Route: 065
     Dates: start: 20200411
  32. SALINE [SODIUM CHLORIDE] [Concomitant]
     Active Substance: SODIUM CHLORIDE
     Indication: PRODUCT USED FOR UNKNOWN INDICATION
     Dosage: 1500 MILLILITER
     Route: 065
     Dates: start: 20200411
  33. ETOMIDATE. [Concomitant]
     Active Substance: ETOMIDATE
     Indication: SEDATIVE THERAPY
     Dosage: UNK
     Route: 065
     Dates: start: 20200401
  34. MIDAZOLAM. [Concomitant]
     Active Substance: MIDAZOLAM
     Indication: SEDATIVE THERAPY
     Dosage: UNK
     Route: 065
     Dates: start: 20200401, end: 20200411
  35. HYDROXYCHLOROQUINE [Suspect]
     Active Substance: HYDROXYCHLOROQUINE
     Indication: COVID-19
     Dosage: UNK
     Route: 065
     Dates: start: 20200331
  36. ATROPINE. [Concomitant]
     Active Substance: ATROPINE
     Indication: CARDIO-RESPIRATORY ARREST
     Dosage: 1 MILLIGRAM, TWO VIALS OF ATROPINE 1 MG; 8 VIALS OF ATROPINE AT PERCUTANEOUS PACEMAKER INSERTION
     Route: 065
     Dates: start: 20200411
  37. METAMIZOLE [Concomitant]
     Active Substance: METAMIZOLE
     Indication: PRODUCT USED FOR UNKNOWN INDICATION
     Dosage: UNK
     Route: 065
     Dates: end: 20200411
  38. AMIODARONE [Concomitant]
     Active Substance: AMIODARONE
     Indication: SUPRAVENTRICULAR TACHYCARDIA
     Dosage: 300 MILLIGRAM, , LOADING INFUSION WAS ADMINISTERED IN 20 MIN. AND A MAINTENANCE INFUSION WAS CONTINU
     Route: 065
     Dates: start: 20200405, end: 20200411
  39. SODIUM GLUCONATE. [Concomitant]
     Active Substance: SODIUM GLUCONATE
     Indication: PRODUCT USED FOR UNKNOWN INDICATION
     Dosage: 30 MILLILITER
     Route: 065
     Dates: start: 20200411
  40. HYDROCORTISONE. [Concomitant]
     Active Substance: HYDROCORTISONE
     Indication: PRODUCT USED FOR UNKNOWN INDICATION
     Dosage: UNK
     Route: 065
     Dates: end: 20200404
  41. PIPERACILLIN/TAZOBACTAM [Concomitant]
     Active Substance: PIPERACILLIN SODIUM\TAZOBACTAM SODIUM
     Indication: PRODUCT USED FOR UNKNOWN INDICATION
     Dosage: UNK
     Route: 065
     Dates: start: 20200403, end: 20200408
  42. ENOXAPARIN SODIUM. [Concomitant]
     Active Substance: ENOXAPARIN SODIUM
     Indication: PRODUCT USED FOR UNKNOWN INDICATION
     Dosage: UNK
     Route: 065
     Dates: start: 20200401

REACTIONS (1)
  - Off label use [Unknown]

NARRATIVE: CASE EVENT DATE: 20200331
